FAERS Safety Report 20668471 (Version 1)
Quarter: 2022Q2

REPORT INFORMATION
  Report Type: Report from Study
  Country: FR (occurrence: None)
  Receive Date: 20220404
  Receipt Date: 20220404
  Transmission Date: 20220720
  Serious: Yes (Hospitalization)
  Sender: FDA-Public Use
  Company Number: 2022A129116

PATIENT
  Age: 603 Month
  Sex: Male
  Weight: 85 kg

DRUGS (2)
  1. EVUSHELD [Suspect]
     Active Substance: CILGAVIMAB\TIXAGEVIMAB
     Indication: COVID-19 prophylaxis
     Dosage: EVUSHELD (TIXAGEVIMAB 150 MG/CILGAVIMAB 150 MG)
     Route: 030
     Dates: start: 20220210, end: 20220210
  2. SOTROVIMAB [Concomitant]
     Active Substance: SOTROVIMAB
     Route: 065
     Dates: start: 20220314

REACTIONS (1)
  - COVID-19 [Unknown]

NARRATIVE: CASE EVENT DATE: 20220312
